FAERS Safety Report 4498158-1 (Version None)
Quarter: 2004Q4

REPORT INFORMATION
  Report Type: 
  Country: None (occurrence: None)
  Receive Date: 20041110
  Receipt Date: 20041008
  Transmission Date: 20050328
  Serious: Yes (Life-Threatening)
  Sender: FDA-Public Use
  Company Number: DE-MERCK-0410DEU00285

PATIENT
  Age: 75 Year
  Sex: Male
  Weight: 80 kg

DRUGS (9)
  1. VIOXX [Suspect]
     Indication: METASTATIC PAIN
     Route: 048
     Dates: start: 20040301, end: 20041001
  2. BICALUTAMIDE [Concomitant]
     Indication: PROSTATE CANCER
     Route: 065
     Dates: start: 20040516
  3. LOSARTAN POTASSIUM [Concomitant]
     Indication: HYPERTENSION
     Route: 065
  4. METOPROLOL SUCCINATE [Concomitant]
     Indication: HYPERTENSION
     Route: 065
  5. ZOLPIDEM TARTRATE [Concomitant]
     Indication: INSOMNIA
     Route: 065
     Dates: start: 20040501
  6. PANTOPRAZOLE SODIUM [Concomitant]
     Route: 065
     Dates: start: 20040501
  7. AMPICILLIN SODIUM AND SULBACTAM SODIUM [Concomitant]
     Route: 065
     Dates: start: 20040901, end: 20040901
  8. GENTAMICIN [Concomitant]
     Route: 065
     Dates: start: 20040901, end: 20040901
  9. CIPROFLOXACIN [Concomitant]
     Route: 065
     Dates: start: 20040901, end: 20040901

REACTIONS (3)
  - CARDIAC FAILURE [None]
  - HYPERTENSIVE CRISIS [None]
  - RENAL INJURY [None]
